FAERS Safety Report 7619174-4 (Version None)
Quarter: 2011Q3

REPORT INFORMATION
  Report Type: 
  Country: None (occurrence: None)
  Receive Date: 20110718
  Receipt Date: 20110707
  Transmission Date: 20111222
  Serious: Yes (Hospitalization)
  Sender: FDA-Public Use
  Company Number: PHHO2011JP10940

PATIENT
  Sex: Male
  Weight: 89 kg

DRUGS (9)
  1. RABEPRAZOLE SODIUM [Concomitant]
     Indication: GASTRIC ULCER
     Dosage: 10 MG, UNK
     Route: 048
     Dates: start: 20101020
  2. KAKKON-TO [Concomitant]
     Indication: PROPHYLAXIS
     Dosage: UNK
     Route: 048
     Dates: start: 20110201
  3. ALBUTEROL SULFATE [Concomitant]
     Indication: EMPHYSEMA
     Dosage: UNK
     Dates: start: 20100922
  4. METHOTREXATE [Concomitant]
     Indication: RHEUMATOID ARTHRITIS
     Dosage: UNK
     Route: 048
     Dates: start: 20110125
  5. QAB149 [Suspect]
     Indication: CHRONIC OBSTRUCTIVE PULMONARY DISEASE
     Dosage: 150 UG, QD
     Dates: start: 20110215, end: 20110628
  6. UNISIA COMBINATION [Concomitant]
     Indication: HYPERTENSION
     Dosage: 1 DF, UNK
     Route: 048
     Dates: start: 20110205
  7. FOLIC ACID [Concomitant]
     Indication: PROPHYLAXIS
     Dosage: 1 DF, UNK
     Route: 048
     Dates: start: 20110127
  8. LOXONIN [Concomitant]
     Indication: RHEUMATOID ARTHRITIS
     Dosage: 180 MG, UNK
     Route: 048
     Dates: start: 20110415
  9. SODIUM PICOSULFATE [Concomitant]
     Indication: CONSTIPATION
     Dosage: 15 GTT, UNK
     Route: 048
     Dates: start: 20100825

REACTIONS (2)
  - LIVER ABSCESS [None]
  - MESENTERIC PANNICULITIS [None]
